FAERS Safety Report 17732597 (Version 1)
Quarter: 2020Q2

REPORT INFORMATION
  Report Type: Spontaneous
  Country: ES (occurrence: ES)
  Receive Date: 20200501
  Receipt Date: 20200501
  Transmission Date: 20200714
  Serious: Yes (Other)
  Sender: FDA-Public Use
  Company Number: ES-TEVA-2020-ES-1228514

PATIENT
  Age: 88 Year
  Sex: Male
  Weight: 85 kg

DRUGS (3)
  1. MIRTAZAPINA RATIOPHARM 30 MG COMPRIMIDOS RECUBIERTOS CON PELICULA EFG [Suspect]
     Active Substance: MIRTAZAPINE
     Dosage: 30 MG
     Route: 048
     Dates: start: 20161118, end: 20200311
  2. NOCTAMID 1 MG COMPRIMIDOS , 30 COMPRIMIDOS [Suspect]
     Active Substance: LORMETAZEPAM
     Dosage: 1 MG
     Route: 048
     Dates: start: 20191209, end: 20200311
  3. ADOLONTA RETARD 50 MG COMPRIMIDOS DE LIBERACION PROLONGADA , 20 COMPRI [Concomitant]

REACTIONS (1)
  - Toxic skin eruption [Recovered/Resolved]

NARRATIVE: CASE EVENT DATE: 20200311
